FAERS Safety Report 8956282 (Version 1)
Quarter: 2012Q4

REPORT INFORMATION
  Report Type: 
  Country: GB (occurrence: GB)
  Receive Date: 20121210
  Receipt Date: 20121210
  Transmission Date: 20130627
  Serious: Yes (Hospitalization, Other)
  Sender: FDA-Public Use
  Company Number: GB-JNJFOC-20121202634

PATIENT
  Age: 57 Year
  Sex: Male

DRUGS (18)
  1. XARELTO [Suspect]
     Indication: THROMBOSIS PROPHYLAXIS
     Route: 048
  2. XARELTO [Suspect]
     Indication: KNEE ARTHROPLASTY
     Route: 048
  3. XARELTO [Suspect]
     Indication: ANTICOAGULANT THERAPY
     Route: 048
  4. FENTANYL [Concomitant]
     Route: 065
  5. DROPERIDOL [Concomitant]
     Route: 065
  6. PARACETAMOL [Concomitant]
     Indication: OSTEOARTHRITIS
     Route: 065
  7. TINZAPARIN [Concomitant]
     Route: 058
  8. FLUCLOXACILLIN [Concomitant]
     Indication: ANTIBIOTIC PROPHYLAXIS
     Route: 065
  9. GENTAMICIN [Concomitant]
     Indication: ANTIBIOTIC PROPHYLAXIS
     Route: 065
  10. ROPIVACAINE [Concomitant]
     Indication: LOCAL ANAESTHESIA
     Route: 065
  11. ADRENALINE [Concomitant]
     Indication: LOCAL ANAESTHESIA
     Route: 065
  12. PARECOXIB [Concomitant]
     Indication: LOCAL ANAESTHESIA
     Route: 065
  13. NORMAL SALINE [Concomitant]
     Indication: LOCAL ANAESTHESIA
     Route: 065
  14. MORPHINE [Concomitant]
     Route: 065
  15. GRANISETRON [Concomitant]
     Route: 065
  16. DEXAMETHASONE [Concomitant]
     Route: 065
  17. PROPOFOL [Concomitant]
     Route: 065
  18. EPHEDRINE [Concomitant]
     Route: 065

REACTIONS (3)
  - Drug hypersensitivity [Recovering/Resolving]
  - Acute generalised exanthematous pustulosis [Recovering/Resolving]
  - Haemangioma [Unknown]
